FAERS Safety Report 9202162 (Version 1)
Quarter: 2013Q2

REPORT INFORMATION
  Report Type: Spontaneous
  Country: US (occurrence: US)
  Receive Date: 20130401
  Receipt Date: 20130401
  Transmission Date: 20140414
  Serious: Yes (Death)
  Sender: FDA-Public Use
  Company Number: US-GLAXOSMITHKLINE-A1017046A

PATIENT
  Age: 74 Year
  Sex: Female

DRUGS (9)
  1. PROMACTA [Suspect]
     Indication: IDIOPATHIC THROMBOCYTOPENIC PURPURA
     Dosage: 50MG PER DAY
     Route: 048
     Dates: start: 20120413, end: 20121129
  2. LORAZEPAM [Concomitant]
  3. OMEPRAZOLE [Concomitant]
  4. METOPROLOL [Concomitant]
  5. SINGULAIR [Concomitant]
  6. PROPOXYPHENE [Concomitant]
  7. PLAVIX [Concomitant]
  8. GLUCOSAMINE/CHONDROITIN [Concomitant]
  9. FUROSEMIDE [Concomitant]

REACTIONS (1)
  - Pancreatic carcinoma metastatic [Fatal]
